FAERS Safety Report 14195780 (Version 1)
Quarter: 2017Q4

REPORT INFORMATION
  Report Type: Spontaneous
  Country: US (occurrence: US)
  Receive Date: 20171116
  Receipt Date: 20171116
  Transmission Date: 20180321
  Serious: No
  Sender: FDA-Public Use
  Company Number: US-BAUSCH-BL-2017-019020

PATIENT
  Age: 17 Year
  Sex: Female

DRUGS (2)
  1. XENAZINE [Suspect]
     Active Substance: TETRABENAZINE
     Indication: TIC
     Dosage: 3 TABLETS ORALLY DAILY OF THE 12.5MG TABLET
     Route: 048
     Dates: start: 201706
  2. XENAZINE [Suspect]
     Active Substance: TETRABENAZINE
     Indication: TOURETTE^S DISORDER
     Route: 048

REACTIONS (3)
  - Off label use [Not Recovered/Not Resolved]
  - Treatment noncompliance [Unknown]
  - Drug administration error [Unknown]

NARRATIVE: CASE EVENT DATE: 201706
